FAERS Safety Report 10250916 (Version 1)
Quarter: 2014Q2

REPORT INFORMATION
  Report Type: Spontaneous
  Country: US (occurrence: US)
  Receive Date: 20140620
  Receipt Date: 20140620
  Transmission Date: 20141212
  Serious: Yes (Hospitalization, Other)
  Sender: FDA-Public Use
  Company Number: US-009507513-1406USA007371

PATIENT
  Sex: Female
  Weight: 65.76 kg

DRUGS (2)
  1. NUVARING [Suspect]
     Indication: BLOOD OESTROGEN DECREASED
     Dosage: UNK
     Route: 067
     Dates: start: 20090220
  2. NUVARING [Suspect]
     Indication: MENSTRUAL CYCLE MANAGEMENT
     Dosage: UNK
     Route: 067
     Dates: start: 20110228, end: 20130801

REACTIONS (10)
  - Pulmonary embolism [Unknown]
  - Rhinitis allergic [Unknown]
  - Hypothyroidism [Unknown]
  - Off label use [Unknown]
  - Gallbladder operation [Unknown]
  - Pleurisy [Unknown]
  - Off label use [Unknown]
  - Inappropriate schedule of drug administration [Unknown]
  - Libido decreased [Unknown]
  - Discomfort [Unknown]
